FAERS Safety Report 6747780-8 (Version None)
Quarter: 2010Q2

REPORT INFORMATION
  Report Type: 
  Country: None (occurrence: None)
  Receive Date: 20100528
  Receipt Date: 20100514
  Transmission Date: 20101027
  Serious: Yes (Hospitalization)
  Sender: FDA-Public Use
  Company Number: BE-GENENTECH-300031

PATIENT
  Sex: Male
  Weight: 93 kg

DRUGS (19)
  1. MABTHERA [Suspect]
     Indication: RHEUMATOID ARTHRITIS
     Dosage: 1000 MG, Q2W
     Route: 042
     Dates: start: 20090113, end: 20090127
  2. MABTHERA [Suspect]
     Dosage: 1000 MG, Q2W
     Route: 042
     Dates: end: 20100201
  3. METHOTREXATE [Suspect]
     Indication: RHEUMATOID ARTHRITIS
     Dosage: 20 MG, 1/WEEK
     Route: 048
     Dates: start: 20061208
  4. METHOTREXATE [Suspect]
     Dosage: 10 MG, 1/WEEK
     Route: 048
     Dates: end: 20100331
  5. OCRELIZUMAB [Concomitant]
     Indication: DRUG USE FOR UNKNOWN INDICATION
     Dosage: UNK
  6. MEDROL [Concomitant]
     Indication: RHEUMATOID ARTHRITIS
     Dosage: 16 MG, UNK
     Route: 048
  7. MEDROL [Concomitant]
     Dosage: 4 MG, UNK
     Route: 048
  8. MEDROL [Concomitant]
     Dosage: 1 UNK, UNK
     Route: 048
     Dates: start: 20100403, end: 20100405
  9. MEDROL [Concomitant]
     Dosage: UNK
     Route: 048
     Dates: start: 20100406
  10. MEDROL [Concomitant]
     Dosage: UNK
     Route: 048
     Dates: start: 20100408
  11. REMICADE [Concomitant]
     Indication: DRUG USE FOR UNKNOWN INDICATION
     Dosage: UNK
  12. TICLID [Concomitant]
     Indication: DRUG USE FOR UNKNOWN INDICATION
     Dosage: 20 MG, BID
     Route: 048
  13. SIMVASTATIN [Concomitant]
     Indication: DRUG USE FOR UNKNOWN INDICATION
     Dosage: 40 MG, QD
     Route: 048
  14. OMEPRAZOLE [Concomitant]
     Indication: OESOPHAGITIS
     Dosage: 20 MG, QD
     Route: 048
  15. COVERSYL [Concomitant]
     Indication: DRUG USE FOR UNKNOWN INDICATION
     Dosage: 5 MG, QD
     Route: 048
  16. BISOPROLOL [Concomitant]
     Indication: DRUG USE FOR UNKNOWN INDICATION
     Dosage: 10 MG, QD
     Route: 048
  17. FOLIC ACID [Concomitant]
     Indication: RHEUMATOID ARTHRITIS
     Dosage: 10 MG, QD
     Route: 048
  18. STEOVIT D3 [Concomitant]
     Indication: DRUG USE FOR UNKNOWN INDICATION
     Dosage: UNK
     Route: 048
  19. LORMETAZEPAM [Concomitant]
     Indication: DRUG USE FOR UNKNOWN INDICATION
     Dosage: 1 MG, QD
     Route: 048

REACTIONS (6)
  - ALVEOLITIS ALLERGIC [None]
  - COUGH [None]
  - DYSPNOEA EXERTIONAL [None]
  - MALAISE [None]
  - OESOPHAGITIS [None]
  - PYREXIA [None]
